FAERS Safety Report 7459317-9 (Version None)
Quarter: 2011Q2

REPORT INFORMATION
  Report Type: 
  Country: None (occurrence: None)
  Receive Date: 20110505
  Receipt Date: 20110502
  Transmission Date: 20111010
  Serious: No
  Sender: FDA-Public Use
  Company Number: US-PFIZER INC-2007080630

PATIENT
  Sex: Female
  Weight: 64.399 kg

DRUGS (5)
  1. LIPITOR [Concomitant]
  2. PLAVIX [Concomitant]
  3. CHANTIX [Suspect]
     Indication: SMOKING CESSATION THERAPY
     Dosage: UNK
     Route: 048
     Dates: start: 20070901
  4. CHANTIX [Suspect]
     Dosage: 1 MG, 2X/DAY
     Route: 048
  5. ASPIRIN [Concomitant]

REACTIONS (4)
  - WEIGHT DECREASED [None]
  - DRUG INEFFECTIVE [None]
  - BRONCHITIS [None]
  - COUGH [None]
